FAERS Safety Report 6420504-X (Version None)
Quarter: 2009Q4

REPORT INFORMATION
  Report Type: 
  Country: None (occurrence: None)
  Receive Date: 20091021
  Receipt Date: 20090812
  Transmission Date: 20100525
  Serious: No
  Sender: FDA-Public Use
  Company Number: ALL1-2009-00987

PATIENT
  Age: 38 Year
  Sex: Male
  Weight: 96.1 kg

DRUGS (2)
  1. VYVANSE [Suspect]
     Indication: ATTENTION DEFICIT/HYPERACTIVITY DISORDER
     Dosage: 70 MG, 1X/DAY:QD, ORAL
     Route: 048
     Dates: start: 20090327, end: 20090327
  2. INSULIN (INSULIN) INFUSION [Concomitant]

REACTIONS (1)
  - URINARY RETENTION [None]
